FAERS Safety Report 9997989 (Version 1)
Quarter: 2014Q1

REPORT INFORMATION
  Report Type: Spontaneous
  Country: US (occurrence: None)
  Receive Date: 20140304
  Receipt Date: 20140304
  Transmission Date: 20141002
  Serious: Yes (Hospitalization, Other)
  Sender: FDA-Public Use
  Company Number: RB-61528-2013

PATIENT
  Sex: Male

DRUGS (3)
  1. BUPRENORPHINE [Suspect]
     Indication: DRUG DEPENDENCE
     Dosage: (20 MG, 16MG IN THE MORNING AND 4 MG IN THE EVENING TRANSPLACENTAL)
     Route: 064
     Dates: start: 20130504, end: 2013
  2. NICOTINE [Concomitant]
  3. IRON [Concomitant]

REACTIONS (3)
  - Foetal exposure during pregnancy [None]
  - Drug withdrawal syndrome neonatal [None]
  - Sneezing [None]
